FAERS Safety Report 5823654-1 (Version None)
Quarter: 2008Q3

REPORT INFORMATION
  Report Type: 
  Country: None (occurrence: None)
  Receive Date: 20080725
  Receipt Date: 20080714
  Transmission Date: 20090109
  Serious: Yes (Other)
  Sender: FDA-Public Use
  Company Number: BR-PFIZER INC-2007101924

PATIENT
  Sex: Male

DRUGS (3)
  1. EXUBERA [Suspect]
     Indication: DIABETES MELLITUS
     Route: 055
     Dates: start: 20070518, end: 20071020
  2. LANTUS [Concomitant]
     Dates: start: 20051201
  3. INSULIN INSULATARD NPH NORDISK [Concomitant]

REACTIONS (6)
  - BLINDNESS [None]
  - BLOOD GLUCOSE FLUCTUATION [None]
  - HYPERTENSION [None]
  - NEUROPATHY PERIPHERAL [None]
  - THERAPY REGIMEN CHANGED [None]
  - VISION BLURRED [None]
